FAERS Safety Report 10232844 (Version 1)
Quarter: 2014Q2

REPORT INFORMATION
  Report Type: Spontaneous
  Country: CH (occurrence: CH)
  Receive Date: 20140612
  Receipt Date: 20140612
  Transmission Date: 20141212
  Serious: Yes (Hospitalization)
  Sender: FDA-Public Use
  Company Number: CH-NOVOPROD-412208

PATIENT
  Age: 66 Year
  Sex: Female
  Weight: 84 kg

DRUGS (9)
  1. VICTOZA [Suspect]
     Indication: DIABETIC NEPHROPATHY
     Dosage: 1.8 MG, QD
     Route: 058
     Dates: start: 20130129, end: 20140507
  2. XYZAL [Concomitant]
     Dosage: 5 MG, QD (START DATE BEFORE 2013)
     Route: 048
  3. SIRDALUD [Concomitant]
     Dosage: 2 MG PRN (START DATE BEFORE 2013)
     Route: 048
  4. ASPIRIN CARDIO [Concomitant]
     Dosage: 100 MG, QD (START DATE BEFORE 2013)
     Route: 048
  5. TRAMADOL [Concomitant]
     Dosage: 20 GTT, PRN (START DATE BEFORE 2013)
  6. SIMCORA [Concomitant]
     Indication: HYPERLIPIDAEMIA
     Dosage: 20 MG, QD (START DATE BEFORE 2013)
  7. METFIN [Concomitant]
     Indication: TYPE 2 DIABETES MELLITUS
     Dosage: 1000 MG, BID (START DATE BEFORE 2013 LONG TERM USE)
     Route: 048
  8. METOPROLOL [Concomitant]
     Dosage: 25 MG, BID (START DATE BEFORE 2013 LONG TERM USE)
     Route: 048
  9. D3 [Concomitant]
     Dosage: LONG TERM USE

REACTIONS (1)
  - Autoimmune hepatitis [Unknown]
